FAERS Safety Report 14646393 (Version 4)
Quarter: 2018Q2

REPORT INFORMATION
  Report Type: Report from Study
  Country: US (occurrence: US)
  Receive Date: 20180316
  Receipt Date: 20180426
  Transmission Date: 20180711
  Serious: No
  Sender: FDA-Public Use
  Company Number: PHEH2018US010236

PATIENT
  Age: 24 Year
  Sex: Female

DRUGS (1)
  1. GILENYA [Suspect]
     Active Substance: FINGOLIMOD HYDROCHLORIDE
     Indication: MULTIPLE SCLEROSIS
     Dosage: 0.5 MG, QD
     Route: 048
     Dates: start: 20180225, end: 20180411

REACTIONS (14)
  - Dry skin [Unknown]
  - Allergy test positive [Unknown]
  - Pallor [Unknown]
  - Abdominal pain upper [Recovering/Resolving]
  - Anxiety [Not Recovered/Not Resolved]
  - Weight increased [Unknown]
  - Temperature intolerance [Recovering/Resolving]
  - Eczema [Unknown]
  - Vision blurred [Unknown]
  - Hepatic enzyme increased [Not Recovered/Not Resolved]
  - Depression [Not Recovered/Not Resolved]
  - Muscle twitching [Unknown]
  - Pruritus [Recovering/Resolving]
  - Fatigue [Unknown]

NARRATIVE: CASE EVENT DATE: 20180225
